FAERS Safety Report 10279595 (Version 2)
Quarter: 2014Q3

REPORT INFORMATION
  Report Type: Spontaneous
  Country: DE (occurrence: DE)
  Receive Date: 20140707
  Receipt Date: 20140709
  Transmission Date: 20150326
  Serious: Yes (Death, Other)
  Sender: FDA-Public Use
  Company Number: PHHY2014DE081637

PATIENT
  Age: 63 Year
  Sex: Male

DRUGS (3)
  1. SUNITINIB [Concomitant]
     Active Substance: SUNITINIB
     Indication: METASTATIC RENAL CELL CARCINOMA
     Dosage: 37.5 MG, DAILY
     Dates: start: 20100128, end: 2010
  2. EVEROLIMUS [Suspect]
     Active Substance: EVEROLIMUS
     Indication: METASTATIC RENAL CELL CARCINOMA
     Dosage: 10 MG, DAILY
     Route: 048
     Dates: start: 20100306, end: 20100722
  3. ZOLEDRONATE [Suspect]
     Active Substance: ZOLEDRONIC ACID
     Indication: METASTASES TO BONE
     Dosage: UNK UKN, UNK
     Dates: start: 20100202

REACTIONS (11)
  - Metastases to lung [Unknown]
  - Gamma-glutamyltransferase increased [Recovering/Resolving]
  - Metastases to bone [Unknown]
  - Blood lactate dehydrogenase increased [Recovering/Resolving]
  - Neoplasm progression [Fatal]
  - Eyelid oedema [Unknown]
  - Bone pain [Recovering/Resolving]
  - Karnofsky scale worsened [Recovered/Resolved]
  - Metastases to liver [Unknown]
  - Fatigue [Recovering/Resolving]
  - Yellow skin [Unknown]

NARRATIVE: CASE EVENT DATE: 20100209
